FAERS Safety Report 7341492-8 (Version None)
Quarter: 2011Q1

REPORT INFORMATION
  Report Type: 
  Country: None (occurrence: None)
  Receive Date: 20110301
  Receipt Date: 20110224
  Transmission Date: 20110831
  Serious: Yes (Life-Threatening, Hospitalization, Disabling)
  Sender: FDA-Public Use
  Company Number: TPA2011A00194

PATIENT
  Age: 44 Year
  Sex: Male
  Weight: 114.3065 kg

DRUGS (1)
  1. ULORIC [Suspect]
     Indication: GOUT
     Dosage: 80 MG, 1 IN 1 D, PER ORAL
     Route: 048
     Dates: start: 20100223, end: 20100301

REACTIONS (6)
  - FATIGUE [None]
  - RESPIRATORY FAILURE [None]
  - MENINGITIS ASEPTIC [None]
  - ENCEPHALITIS [None]
  - UNRESPONSIVE TO STIMULI [None]
  - MENINGITIS CHEMICAL [None]
